FAERS Safety Report 16864688 (Version 3)
Quarter: 2019Q4

REPORT INFORMATION
  Report Type: Spontaneous
  Country: JP (occurrence: JP)
  Receive Date: 20190929
  Receipt Date: 20191122
  Transmission Date: 20200122
  Serious: Yes (Life-Threatening, Other)
  Sender: FDA-Public Use
  Company Number: PHJP2019JP012791

PATIENT
  Age: 62 Year
  Sex: Male
  Weight: 80.9 kg

DRUGS (4)
  1. PLAVIX [Suspect]
     Active Substance: CLOPIDOGREL BISULFATE
     Indication: HEADACHE
     Dosage: 75 MG, QD
     Route: 048
     Dates: start: 20160917, end: 20180301
  2. PLAVIX [Suspect]
     Active Substance: CLOPIDOGREL BISULFATE
     Indication: CEREBRAL INFARCTION
  3. EQUMET [Suspect]
     Active Substance: METFORMIN HYDROCHLORIDE\VILDAGLIPTIN
     Indication: TYPE 2 DIABETES MELLITUS
     Dosage: 1 DF(METFORMIN500MG, VILDAGLIPTIN50MG), BID
     Route: 048
     Dates: start: 20181019, end: 20190921
  4. TENORMIN [Concomitant]
     Active Substance: ATENOLOL
     Indication: TYPE 2 DIABETES MELLITUS
     Dosage: 25 MG, QD
     Route: 048
     Dates: start: 20191019

REACTIONS (2)
  - Colitis ulcerative [Recovering/Resolving]
  - Diverticulitis [Unknown]

NARRATIVE: CASE EVENT DATE: 201909
